FAERS Safety Report 14935730 (Version 7)
Quarter: 2018Q3

REPORT INFORMATION
  Report Type: Report from Study
  Country: US (occurrence: US)
  Receive Date: 20180524
  Receipt Date: 20180822
  Transmission Date: 20181010
  Serious: Yes (Hospitalization)
  Sender: FDA-Public Use
  Company Number: US-ACTELION-A-NJ2018-172525

PATIENT
  Age: 69 Year
  Sex: Female
  Weight: 52.15 kg

DRUGS (5)
  1. TRACLEER [Concomitant]
     Active Substance: BOSENTAN
     Indication: PULMONARY ARTERIAL HYPERTENSION
  2. LETAIRIS [Concomitant]
     Active Substance: AMBRISENTAN
  3. SILDENAFIL. [Concomitant]
     Active Substance: SILDENAFIL
  4. DOPAMINE [Concomitant]
     Active Substance: DOPAMINE\DOPAMINE HYDROCHLORIDE
  5. VELETRI [Suspect]
     Active Substance: EPOPROSTENOL
     Indication: PULMONARY ARTERIAL HYPERTENSION
     Dosage: 71 NG/KG, PER MIN
     Route: 042

REACTIONS (8)
  - Hip surgery [Unknown]
  - Peripheral swelling [Unknown]
  - Device dislocation [Unknown]
  - Diarrhoea [Unknown]
  - General physical health deterioration [Unknown]
  - Fall [Unknown]
  - Hip fracture [Unknown]
  - Nausea [Unknown]

NARRATIVE: CASE EVENT DATE: 20180514
